FAERS Safety Report 26157910 (Version 1)
Quarter: 2025Q4

REPORT INFORMATION
  Report Type: Spontaneous
  Country: US (occurrence: None)
  Receive Date: 20251214
  Receipt Date: 20251214
  Transmission Date: 20260118
  Serious: Yes (Disabling)
  Sender: FDA-CTU
  Company Number: None

PATIENT
  Sex: Female
  Weight: 54 kg

DRUGS (1)
  1. ACCUTANE [Suspect]
     Active Substance: ISOTRETINOIN
     Indication: Acne

REACTIONS (3)
  - Dry eye [None]
  - Dry mouth [None]
  - Premature menopause [None]

NARRATIVE: CASE EVENT DATE: 20170301
